FAERS Safety Report 13969915 (Version 5)
Quarter: 2018Q2

REPORT INFORMATION
  Report Type: Spontaneous
  Country: DE (occurrence: DE)
  Receive Date: 20170914
  Receipt Date: 20180426
  Transmission Date: 20180711
  Serious: Yes (Other)
  Sender: FDA-Public Use
  Company Number: DE-PFIZER INC-2017393934

PATIENT
  Age: 76 Year
  Sex: Male
  Weight: 81 kg

DRUGS (24)
  1. NORADRENALINE [Concomitant]
     Active Substance: NOREPINEPHRINE
     Dosage: 0.35MG/KG/MIN
  2. HEPARIN-RATIOPHARM [Suspect]
     Active Substance: HEPARIN SODIUM
     Dosage: 30000 IU, UNK
     Dates: end: 20170830
  3. HEPARIN-RATIOPHARM [Suspect]
     Active Substance: HEPARIN SODIUM
     Dosage: 70000 IU, DAILY
     Route: 042
  4. HEPARIN-RATIOPHARM [Suspect]
     Active Substance: HEPARIN SODIUM
     Dosage: 30000 IU, UNK
     Dates: start: 20170830
  5. NORADRENALINE [Concomitant]
     Active Substance: NOREPINEPHRINE
     Dosage: UNK
     Route: 065
     Dates: start: 20170830
  6. ATORVASTATIN [Concomitant]
     Active Substance: ATORVASTATIN
     Dosage: 40 MG, 1X/DAY
  7. TAMSULOSIN [Concomitant]
     Active Substance: TAMSULOSIN
     Dosage: 0.4 MG, 1X/DAY
  8. ASPIRIN. [Concomitant]
     Active Substance: ASPIRIN
     Dosage: 100 MG, 1X/DAY
  9. HEPARIN-RATIOPHARM [Suspect]
     Active Substance: HEPARIN SODIUM
     Dosage: 70000 IU, DAILY
     Route: 042
  10. HEPARIN-RATIOPHARM [Suspect]
     Active Substance: HEPARIN SODIUM
     Dosage: 70000 IU (INTERNATIONAL UNIT), DAILY
     Route: 042
  11. NORADRENALINE [Concomitant]
     Active Substance: NOREPINEPHRINE
     Dosage: AFTER 8H POST-OP 0.15 UG/KG/MIN
  12. NORADRENALINE [Concomitant]
     Active Substance: NOREPINEPHRINE
     Dosage: 1 UG, UNK
     Route: 065
     Dates: start: 20170830
  13. NORADRENALINE [Concomitant]
     Active Substance: NOREPINEPHRINE
     Dosage: UNK
  14. TRAVATAN [Concomitant]
     Active Substance: TRAVOPROST
     Dosage: UNK
  15. SEVORANE [Concomitant]
     Active Substance: SEVOFLURANE
     Dosage: UNK
     Dates: start: 20170830
  16. HEPARIN-RATIOPHARM [Suspect]
     Active Substance: HEPARIN SODIUM
     Dosage: 45000 IU, UNK
     Route: 042
  17. HEPARIN-RATIOPHARM [Suspect]
     Active Substance: HEPARIN SODIUM
     Dosage: 30000 IU, UNK
  18. NORADRENALINE [Concomitant]
     Active Substance: NOREPINEPHRINE
     Dosage: 1HR POST-OP 1.0UG/KG/MIN
  19. CUSTODIOL /04792301/ [Concomitant]
     Active Substance: CALCIUM CL\HISTIDINE\MAGNESIUM\MANNITOL\POTASSIUM\SODIUM CL\TRYPTOPHAN
     Dosage: 950 ML, UNK
     Dates: start: 20170830
  20. STEROFUNDIN B [Concomitant]
     Dosage: UNK
     Dates: start: 20170830
  21. TRANEXAMIC ACID. [Suspect]
     Active Substance: TRANEXAMIC ACID
     Dosage: 2 G, UNK (500 MG 5 ML)
  22. TRANEXAMIC ACID. [Suspect]
     Active Substance: TRANEXAMIC ACID
     Dosage: 2 G, UNK
  23. HEPARIN-RATIOPHARM [Suspect]
     Active Substance: HEPARIN SODIUM
     Dosage: 45000 IU, UNK
     Route: 042
  24. HEPARIN-RATIOPHARM [Suspect]
     Active Substance: HEPARIN SODIUM
     Dosage: 45000 IU, UNK
     Route: 042

REACTIONS (7)
  - Hypotension [Unknown]
  - Drug ineffective [Unknown]
  - Multiple organ dysfunction syndrome [Recovered/Resolved]
  - Arrhythmia [Unknown]
  - Vasodilatation [Recovered/Resolved]
  - Coagulation time prolonged [Unknown]
  - Haemoglobin increased [Recovered/Resolved]

NARRATIVE: CASE EVENT DATE: 20170830
